FAERS Safety Report 26116824 (Version 1)
Quarter: 2025Q4

REPORT INFORMATION
  Report Type: Spontaneous
  Country: US (occurrence: US)
  Receive Date: 20251203
  Receipt Date: 20251203
  Transmission Date: 20260117
  Serious: No
  Sender: ROCHE
  Company Number: US-ROCHE-10000449845

PATIENT
  Sex: Male

DRUGS (13)
  1. XOLAIR [Suspect]
     Active Substance: OMALIZUMAB
     Indication: Urticaria
     Dosage: STRENGTH: 300MG/2ML
     Route: 058
  2. AMITIZA [Concomitant]
     Active Substance: LUBIPROSTONE
     Route: 048
  3. AMLODIPINE [Concomitant]
     Active Substance: AMLODIPINE BESYLATE
     Route: 048
  4. BUSPIRONE [Concomitant]
     Active Substance: BUSPIRONE HYDROCHLORIDE
     Route: 048
  5. CLARITIN [Concomitant]
     Active Substance: LORATADINE
     Route: 048
  6. IMITREX [Concomitant]
     Active Substance: SUMATRIPTAN SUCCINATE
     Route: 048
  7. LOSARTAN [Concomitant]
     Active Substance: LOSARTAN
     Route: 048
  8. LYRICA [Concomitant]
     Active Substance: PREGABALIN
  9. MAGNESIUM [Concomitant]
     Active Substance: MAGNESIUM
  10. OMEGA 3 [Concomitant]
     Active Substance: CAPSAICIN
  11. OXYCODONE [Concomitant]
     Active Substance: OXYCODONE
  12. PROSCAR [Concomitant]
     Active Substance: FINASTERIDE
  13. TESTOSTERONE [Concomitant]
     Active Substance: TESTOSTERONE

REACTIONS (2)
  - Flushing [Recovered/Resolved]
  - Blood pressure increased [Recovered/Resolved]
